FAERS Safety Report 6355034-7 (Version None)
Quarter: 2009Q3

REPORT INFORMATION
  Report Type: 
  Country: None (occurrence: None)
  Receive Date: 20090914
  Receipt Date: 20090908
  Transmission Date: 20100115
  Serious: Yes (Other)
  Sender: FDA-Public Use
  Company Number: B0592487A

PATIENT
  Age: 63 Year
  Sex: Female

DRUGS (3)
  1. VALTREX [Suspect]
     Indication: HERPES ZOSTER
     Dosage: 500MG PER DAY
     Route: 048
     Dates: start: 20090903, end: 20090906
  2. VELCADE [Concomitant]
     Route: 042
  3. PREDNISOLONE [Concomitant]
     Route: 065

REACTIONS (2)
  - DELIRIUM [None]
  - HALLUCINATION, VISUAL [None]
